FAERS Safety Report 5406585-0 (Version None)
Quarter: 2007Q3

REPORT INFORMATION
  Report Type: 
  Country: None (occurrence: None)
  Receive Date: 20070806
  Receipt Date: 20070725
  Transmission Date: 20080115
  Serious: Yes (Life-Threatening, Hospitalization)
  Sender: FDA-Public Use
  Company Number: FR-PFIZER INC-2007061902

PATIENT
  Sex: Male

DRUGS (10)
  1. DALACINE [Suspect]
     Route: 048
     Dates: start: 20070123, end: 20070125
  2. SULFADIAZINE [Suspect]
     Indication: TOXOPLASMOSIS
     Route: 048
     Dates: start: 20070110, end: 20070123
  3. PYRIMETHAMINE TAB [Suspect]
     Indication: TOXOPLASMOSIS
     Route: 048
     Dates: start: 20070110, end: 20070125
  4. SULFAMETHOXAZOLE W/TRIMETHOPRIM [Suspect]
     Route: 048
     Dates: start: 20070103, end: 20070110
  5. FOSCARNET [Concomitant]
     Route: 042
  6. ACYCLOVIR [Concomitant]
     Route: 042
     Dates: start: 20070103, end: 20070121
  7. PREDNISONE TAB [Concomitant]
     Route: 048
     Dates: start: 20070103, end: 20070109
  8. CALCIUM FOLINATE [Concomitant]
     Route: 048
     Dates: start: 20070110, end: 20070124
  9. ALPRAZOLAM [Concomitant]
     Route: 048
  10. PYRIDOXINE HCL [Concomitant]
     Route: 048
     Dates: start: 20070103, end: 20070127

REACTIONS (1)
  - TOXIC EPIDERMAL NECROLYSIS [None]
